FAERS Safety Report 6432121-6 (Version None)
Quarter: 2009Q4

REPORT INFORMATION
  Report Type: 
  Country: None (occurrence: None)
  Receive Date: 20091109
  Receipt Date: 20091028
  Transmission Date: 20100525
  Serious: Yes (Hospitalization)
  Sender: FDA-Public Use
  Company Number: PL-ELI_LILLY_AND_COMPANY-PL200910007085

PATIENT
  Sex: Male
  Weight: 58 kg

DRUGS (7)
  1. PEMETREXED [Suspect]
     Indication: HEAD AND NECK CANCER
     Dosage: 500 MG/M2, UNKNOWN
     Dates: start: 20090701
  2. CISPLATIN [Suspect]
     Indication: HEAD AND NECK CANCER
     Dosage: 75 MG/M2, DAY 1 EVERY 21 DAYS
     Dates: start: 20090701
  3. FOLIC ACID [Concomitant]
     Indication: SUPPLEMENTATION THERAPY
     Dosage: 0.4 MG, DAILY (1/D)
     Route: 048
     Dates: start: 20090623
  4. VITAMIN B-12 [Concomitant]
     Indication: SUPPLEMENTATION THERAPY
     Dosage: 1000 UG, 3/W
     Route: 030
     Dates: start: 20090623
  5. DEXAMETHASONE [Concomitant]
     Indication: SUPPLEMENTATION THERAPY
     Dosage: 8 MG, 2/D
     Route: 048
     Dates: start: 20090630, end: 20091022
  6. FENTANYL [Concomitant]
     Indication: PAIN
     Dosage: 25 UG, EVERY HOUR
     Dates: start: 20090710
  7. MEGESTROL ACETATE [Concomitant]
     Indication: WEIGHT DECREASED
     Dosage: 0.8 G, UNKNOWN
     Dates: start: 20090301

REACTIONS (3)
  - FATIGUE [None]
  - HYPONATRAEMIA [None]
  - NEUTROPENIA [None]
